FAERS Safety Report 16705723 (Version 2)
Quarter: 2019Q4

REPORT INFORMATION
  Report Type: Spontaneous
  Country: US (occurrence: US)
  Receive Date: 20190815
  Receipt Date: 20191001
  Transmission Date: 20200122
  Serious: No
  Sender: FDA-Public Use
  Company Number: US-MYLANLABS-2019M1058634

PATIENT
  Sex: Female

DRUGS (1)
  1. PIOGLITAZONE MYLAN [Suspect]
     Active Substance: PIOGLITAZONE
     Indication: PRODUCT USED FOR UNKNOWN INDICATION
     Dosage: 1 DOSAGE FORM, Q3D

REACTIONS (3)
  - Off label use [None]
  - Glycosylated haemoglobin increased [None]
  - Abdominal discomfort [Unknown]
